FAERS Safety Report 6462036-9 (Version None)
Quarter: 2009Q4

REPORT INFORMATION
  Report Type: 
  Country: None (occurrence: None)
  Receive Date: 20091130
  Receipt Date: 20091113
  Transmission Date: 20100525
  Serious: Yes (Other)
  Sender: FDA-Public Use
  Company Number: PHHY2009BE49758

PATIENT
  Sex: Male

DRUGS (3)
  1. GENTEAL (NVO) [Suspect]
  2. GENTEAL (NVO) [Suspect]
     Dosage: BEFORE GOING TO BED
  3. HYABAK [Concomitant]
     Dosage: 5-6 TIMES DAILY

REACTIONS (2)
  - CORNEAL DEGENERATION [None]
  - DRUG DISPENSING ERROR [None]
